FAERS Safety Report 9783326 (Version 1)
Quarter: 2013Q4

REPORT INFORMATION
  Report Type: Spontaneous
  Country: TR (occurrence: None)
  Receive Date: 20131223
  Receipt Date: 20131223
  Transmission Date: 20140711
  Serious: Yes (Other)
  Sender: FDA-Public Use
  Company Number: TR-ALKEM-000438

PATIENT
  Age: 17 Year
  Sex: Male

DRUGS (1)
  1. METFORMIN [Suspect]
     Indication: INSULIN RESISTANCE
     Dosage: 250.00MG 1.00 TIMES PER 1.0 DAYS

REACTIONS (3)
  - Haemolytic anaemia [None]
  - Hyperglycaemia [None]
  - Blood bilirubin increased [None]
